FAERS Safety Report 25658109 (Version 1)
Quarter: 2025Q3

REPORT INFORMATION
  Report Type: Spontaneous
  Country: US (occurrence: US)
  Receive Date: 20250808
  Receipt Date: 20250808
  Transmission Date: 20251020
  Serious: No
  Sender: Kenvue
  Company Number: US-KENVUE-20250706262

PATIENT
  Sex: Male

DRUGS (5)
  1. TYLENOL [Suspect]
     Active Substance: ACETAMINOPHEN
     Indication: Pain in extremity
     Route: 065
  2. Covid-19 Vaccine [Concomitant]
     Indication: COVID-19
     Route: 030
     Dates: start: 20231031
  3. Influenza Quad Injection [Concomitant]
     Indication: Product used for unknown indication
     Route: 030
  4. MOUNJARO [Concomitant]
     Active Substance: TIRZEPATIDE
     Indication: Diabetes mellitus
     Dosage: UNK UNK, ONCE IN A WEEK
     Route: 065
  5. TELMISARTAN [Concomitant]
     Active Substance: TELMISARTAN
     Indication: Hypertension
     Dosage: ONE TABLET A DAY
     Route: 065

REACTIONS (1)
  - Therapeutic product effect incomplete [Unknown]
